FAERS Safety Report 25983816 (Version 1)
Quarter: 2025Q4

REPORT INFORMATION
  Report Type: Spontaneous
  Country: US (occurrence: None)
  Receive Date: 20251030
  Receipt Date: 20251030
  Transmission Date: 20260117
  Serious: Yes (Hospitalization)
  Sender: FDA-CTU
  Company Number: None

PATIENT
  Sex: Female

DRUGS (4)
  1. HUMIRA [Suspect]
     Active Substance: ADALIMUMAB
     Indication: Psoriatic arthropathy
     Dosage: 40 MG  EVERY 7 DAYS SUBCUTANEOUS?
     Route: 058
     Dates: start: 20241120
  2. DUPIXENT [Suspect]
     Active Substance: DUPILUMAB
  3. GABAPENTIN [Concomitant]
     Active Substance: GABAPENTIN
  4. SUBOXONE [Concomitant]
     Active Substance: BUPRENORPHINE HYDROCHLORIDE\NALOXONE HYDROCHLORIDE

REACTIONS (4)
  - Cellulitis [None]
  - Psoriasis [None]
  - Alopecia [None]
  - Alopecia [None]
